FAERS Safety Report 12993062 (Version 2)
Quarter: 2017Q1

REPORT INFORMATION
  Report Type: Spontaneous
  Country: PL (occurrence: PL)
  Receive Date: 20161202
  Receipt Date: 20170116
  Transmission Date: 20170428
  Serious: Yes (Death, Hospitalization, Other)
  Sender: FDA-Public Use
  Company Number: PL-ROCHE-1860767

PATIENT
  Age: 63 Year
  Sex: Male
  Weight: 60 kg

DRUGS (10)
  1. MABTHERA [Suspect]
     Active Substance: RITUXIMAB
     Route: 042
     Dates: end: 201408
  2. MABTHERA [Suspect]
     Active Substance: RITUXIMAB
     Indication: CHRONIC LYMPHOCYTIC LEUKAEMIA
     Route: 042
     Dates: start: 201505, end: 2015
  3. CYCLOPHOSPHAMIDE. [Concomitant]
     Active Substance: CYCLOPHOSPHAMIDE
     Indication: CHRONIC LYMPHOCYTIC LEUKAEMIA
     Route: 065
     Dates: start: 201005, end: 201005
  4. CYCLOPHOSPHAMIDE. [Concomitant]
     Active Substance: CYCLOPHOSPHAMIDE
     Route: 065
     Dates: end: 201408
  5. MABTHERA [Suspect]
     Active Substance: RITUXIMAB
     Indication: CHRONIC LYMPHOCYTIC LEUKAEMIA
     Route: 065
     Dates: start: 201005, end: 201005
  6. MABTHERA [Suspect]
     Active Substance: RITUXIMAB
     Route: 042
     Dates: start: 20150518, end: 20150518
  7. FLUDARABINE [Concomitant]
     Active Substance: FLUDARABINE PHOSPHATE
     Route: 065
     Dates: start: 201005
  8. BENDAMUSTINE [Concomitant]
     Active Substance: BENDAMUSTINE
     Indication: CHRONIC LYMPHOCYTIC LEUKAEMIA
     Route: 065
     Dates: end: 201302
  9. MABTHERA [Suspect]
     Active Substance: RITUXIMAB
     Route: 042
     Dates: start: 201302, end: 201302
  10. CLADRIBINE. [Concomitant]
     Active Substance: CLADRIBINE
     Indication: CHRONIC LYMPHOCYTIC LEUKAEMIA
     Route: 065
     Dates: end: 201408

REACTIONS (22)
  - Infection [Unknown]
  - Epstein-Barr virus infection [Unknown]
  - Cholestasis [Unknown]
  - Chills [Unknown]
  - General physical health deterioration [Not Recovered/Not Resolved]
  - Staphylococcal bacteraemia [Unknown]
  - Hepatosplenomegaly [Unknown]
  - Transaminases increased [Unknown]
  - Abdominal lymphadenopathy [Unknown]
  - Pyrexia [Unknown]
  - Cholelithiasis [Unknown]
  - Diverticulum intestinal [Unknown]
  - Thrombocytopenia [Unknown]
  - Colitis [Unknown]
  - Respiratory failure [Unknown]
  - Herpes zoster [Unknown]
  - Septic shock [Unknown]
  - Circulatory collapse [Unknown]
  - Anaemia [Unknown]
  - Pancytopenia [Unknown]
  - Histiocytosis haematophagic [Unknown]
  - Cardiac arrest [Fatal]

NARRATIVE: CASE EVENT DATE: 201212
